FAERS Safety Report 24300199 (Version 1)
Quarter: 2024Q3

REPORT INFORMATION
  Report Type: Spontaneous
  Country: US (occurrence: US)
  Receive Date: 20240909
  Receipt Date: 20240909
  Transmission Date: 20241016
  Serious: No
  Sender: MERCK
  Company Number: US-009507513-2409USA001465

PATIENT
  Age: 69 Year
  Sex: Female

DRUGS (2)
  1. CUBICIN [Suspect]
     Active Substance: DAPTOMYCIN
     Indication: Cutibacterium acnes infection
     Dosage: FOR SIX WEEKS
  2. CUBICIN [Suspect]
     Active Substance: DAPTOMYCIN
     Dosage: ANOTHER SIX WEEKS

REACTIONS (1)
  - Product use in unapproved indication [Unknown]
